FAERS Safety Report 7211468-X (Version None)
Quarter: 2011Q1

REPORT INFORMATION
  Report Type: 
  Country: None (occurrence: None)
  Receive Date: 20110105
  Receipt Date: 20101230
  Transmission Date: 20110831
  Serious: Yes (Death)
  Sender: FDA-Public Use
  Company Number: PHHY2010US89263

PATIENT
  Sex: Male

DRUGS (9)
  1. LOVENOX [Concomitant]
     Dosage: 40/4.0 ML
  2. ZOFRAN [Concomitant]
     Route: 048
  3. KEPPRA [Concomitant]
     Route: 048
  4. GLEEVEC [Suspect]
     Dosage: 1 DF, BID
  5. DILTANTIN [Concomitant]
     Route: 048
  6. FOSAMAX [Concomitant]
     Route: 048
  7. DEXAMETHASONE [Concomitant]
     Route: 048
  8. NORVASC [Concomitant]
     Route: 048
  9. PROVIGIL [Concomitant]
     Route: 048

REACTIONS (1)
  - DEATH [None]
